FAERS Safety Report 15082930 (Version 1)
Quarter: 2018Q2

REPORT INFORMATION
  Report Type: Spontaneous
  Country: US (occurrence: US)
  Receive Date: 20180628
  Receipt Date: 20180628
  Transmission Date: 20180711
  Serious: No
  Sender: FDA-Public Use
  Company Number: US-GLENMARK PHARMACEUTICALS-2017GMK028510

PATIENT

DRUGS (3)
  1. MOMETASONE FUROATE. [Suspect]
     Active Substance: MOMETASONE FUROATE
     Indication: SKIN ABRASION
     Dosage: UNK
     Route: 065
     Dates: start: 20170812
  2. MOMETASONE FUROATE. [Suspect]
     Active Substance: MOMETASONE FUROATE
     Indication: WOUND
     Dosage: UNK
     Route: 065
     Dates: start: 20151215
  3. MOMETASONE FUROATE. [Suspect]
     Active Substance: MOMETASONE FUROATE
     Indication: THERMAL BURN
     Dosage: UNK UNK, BID
     Route: 061
     Dates: start: 20170821

REACTIONS (5)
  - Expired product administered [Unknown]
  - Intentional product use issue [Unknown]
  - Product use in unapproved indication [Unknown]
  - Paraesthesia [Not Recovered/Not Resolved]
  - Application site pain [Recovering/Resolving]

NARRATIVE: CASE EVENT DATE: 20170812
